FAERS Safety Report 16737523 (Version 3)
Quarter: 2019Q3

REPORT INFORMATION
  Report Type: Spontaneous
  Country: JP (occurrence: JP)
  Receive Date: 20190823
  Receipt Date: 20190903
  Transmission Date: 20191005
  Serious: Yes (Hospitalization)
  Sender: FDA-Public Use
  Company Number: JP-BAUSCH-BL-2019-024256

PATIENT
  Age: 79 Year
  Sex: Female

DRUGS (7)
  1. MAGNESIUM OXIDE. [Concomitant]
     Active Substance: MAGNESIUM OXIDE
     Indication: PRODUCT USED FOR UNKNOWN INDICATION
  2. LOTENSIN [Concomitant]
     Active Substance: BENAZEPRIL HYDROCHLORIDE
     Indication: PRODUCT USED FOR UNKNOWN INDICATION
  3. MOVIPREP [Suspect]
     Active Substance: ASCORBIC ACID\POLYETHYLENE GLYCOL 3350\POTASSIUM CHLORIDE\SODIUM ASCORBATE\SODIUM CHLORIDE\SODIUM SULFATE
     Route: 048
     Dates: start: 20190814, end: 20190814
  4. MOVIPREP [Suspect]
     Active Substance: ASCORBIC ACID\POLYETHYLENE GLYCOL 3350\POTASSIUM CHLORIDE\SODIUM ASCORBATE\SODIUM CHLORIDE\SODIUM SULFATE
     Indication: BOWEL PREPARATION
     Route: 048
     Dates: start: 20190510, end: 2019
  5. TRICHLORMETHIAZIDE [Concomitant]
     Active Substance: TRICHLORMETHIAZIDE
     Indication: PRODUCT USED FOR UNKNOWN INDICATION
  6. MIYA-BM [Concomitant]
     Active Substance: CLOSTRIDIUM BUTYRICUM SPORES STRAIN M-55
     Indication: PRODUCT USED FOR UNKNOWN INDICATION
  7. FURSULTIAMINE [Concomitant]
     Active Substance: FURSULTIAMINE
     Indication: PRODUCT USED FOR UNKNOWN INDICATION

REACTIONS (5)
  - Cold sweat [Recovered/Resolved]
  - Nausea [Recovered/Resolved]
  - Enterocolitis [Unknown]
  - Abdominal pain lower [Recovered/Resolved]
  - Feeling abnormal [Recovered/Resolved]

NARRATIVE: CASE EVENT DATE: 20190510
